FAERS Safety Report 4636268-6 (Version None)
Quarter: 2005Q2

REPORT INFORMATION
  Report Type: 
  Country: None (occurrence: None)
  Receive Date: 20050415
  Receipt Date: 20040427
  Transmission Date: 20051028
  Serious: No
  Sender: FDA-Public Use
  Company Number: US-BRISTOL-MYERS SQUIBB COMPANY-12573754

PATIENT
  Age: 78 Year
  Sex: Female

DRUGS (1)
  1. CARBOPLATIN [Suspect]
     Route: 042
     Dates: start: 20040420, end: 20040420

REACTIONS (1)
  - PRURITUS [None]
